FAERS Safety Report 12201208 (Version 1)
Quarter: 2016Q1

REPORT INFORMATION
  Report Type: Spontaneous
  Country: US (occurrence: US)
  Receive Date: 20160322
  Receipt Date: 20160322
  Transmission Date: 20160526
  Serious: No
  Sender: FDA-Public Use
  Company Number: US-SA-2015SA062170

PATIENT

DRUGS (1)
  1. NASACORT ALLERGY 24HR [Suspect]
     Active Substance: TRIAMCINOLONE ACETONIDE
     Dosage: FORM: NASAL SPRAY?DOSE: 1 SPRAY PER DAY FOR 3 DAYS
     Route: 045

REACTIONS (2)
  - Burning sensation [Unknown]
  - Headache [Unknown]
